FAERS Safety Report 19166317 (Version 1)
Quarter: 2021Q2

REPORT INFORMATION
  Report Type: Spontaneous
  Country: US (occurrence: US)
  Receive Date: 20210422
  Receipt Date: 20210422
  Transmission Date: 20210717
  Serious: Yes (Hospitalization, Other)
  Sender: FDA-Public Use
  Company Number: US-SUN PHARMACEUTICAL INDUSTRIES LTD-2021R1-292585

PATIENT
  Age: 3 Year
  Sex: Female

DRUGS (1)
  1. ACETAZOLAMIDE. [Suspect]
     Active Substance: ACETAZOLAMIDE
     Indication: OCULAR HYPERTENSION
     Dosage: 30MG/KG/DAY
     Route: 065

REACTIONS (3)
  - Toxic encephalopathy [Unknown]
  - Electrolyte imbalance [Recovered/Resolved]
  - Paralysis [Recovered/Resolved]
